FAERS Safety Report 4552706-1 (Version None)
Quarter: 2005Q1

REPORT INFORMATION
  Report Type: 
  Country: None (occurrence: None)
  Receive Date: 20050114
  Receipt Date: 20041028
  Transmission Date: 20050727
  Serious: Yes (Death, Other)
  Sender: FDA-Public Use
  Company Number: GB-BRISTOL-MYERS SQUIBB COMPANY-12751004

PATIENT
  Age: 59 Year
  Sex: Female

DRUGS (4)
  1. PACLITAXEL [Suspect]
     Indication: OVARIAN CANCER
     Route: 042
  2. CARBOPLATIN [Suspect]
     Indication: OVARIAN CANCER
  3. DEXAMETHASONE [Concomitant]
  4. KYTRIL [Concomitant]

REACTIONS (5)
  - EYE DISORDER [None]
  - NEUROPATHY [None]
  - OVARIAN CANCER [None]
  - SCOTOMA [None]
  - VISUAL ACUITY REDUCED [None]
